FAERS Safety Report 10402605 (Version 1)
Quarter: 2014Q3

REPORT INFORMATION
  Report Type: Spontaneous
  Country: US (occurrence: None)
  Receive Date: 20140821
  Receipt Date: 20140821
  Transmission Date: 20150326
  Serious: No
  Sender: FDA-Public Use
  Company Number: None

PATIENT
  Age: 55 Year
  Sex: Female

DRUGS (2)
  1. VELCADE [Suspect]
     Active Substance: BORTEZOMIB
     Indication: PLASMA CELL MYELOMA
     Route: 058
     Dates: start: 20130601
  2. REVLIMID [Suspect]
     Active Substance: LENALIDOMIDE
     Indication: PLASMA CELL MYELOMA
     Dosage: 1 QD ORAL
     Route: 048
     Dates: start: 20140101

REACTIONS (6)
  - Dizziness [None]
  - Dysstasia [None]
  - Diarrhoea [None]
  - Alopecia [None]
  - Paraesthesia [None]
  - Nausea [None]

NARRATIVE: CASE EVENT DATE: 20140820
